FAERS Safety Report 7383282-6 (Version None)
Quarter: 2011Q1

REPORT INFORMATION
  Report Type: 
  Country: None (occurrence: None)
  Receive Date: 20110325
  Receipt Date: 20110325
  Transmission Date: 20110831
  Serious: Yes (Hospitalization)
  Sender: FDA-Public Use
  Company Number: None

PATIENT
  Age: 87 Year
  Sex: Female
  Weight: 52.3 kg

DRUGS (1)
  1. METHOTREXATE [Suspect]
     Indication: RHEUMATOID ARTHRITIS
     Dosage: 15MG QFRIDAY PO
     Route: 048

REACTIONS (8)
  - COUGH [None]
  - TOXICITY TO VARIOUS AGENTS [None]
  - HYPONATRAEMIA [None]
  - DYSPNOEA [None]
  - METABOLIC ACIDOSIS [None]
  - FATIGUE [None]
  - TACHYCARDIA [None]
  - MALAISE [None]
